FAERS Safety Report 24207303 (Version 1)
Quarter: 2024Q3

REPORT INFORMATION
  Report Type: Spontaneous
  Country: US (occurrence: US)
  Receive Date: 20240813
  Receipt Date: 20240813
  Transmission Date: 20241017
  Serious: No
  Sender: SANOFI AVENTIS
  Company Number: US-SA-SAC20240808001328

PATIENT
  Sex: Female
  Weight: 135.17 kg

DRUGS (3)
  1. DUPIXENT [Suspect]
     Active Substance: DUPILUMAB
     Indication: Dermatitis atopic
     Dosage: 300 MG, QOW
     Route: 058
     Dates: end: 20240605
  2. DUPIXENT [Suspect]
     Active Substance: DUPILUMAB
     Indication: Lichen planus
  3. DUPIXENT [Suspect]
     Active Substance: DUPILUMAB
     Indication: Illness

REACTIONS (3)
  - Inflammation [Unknown]
  - Rash [Unknown]
  - Product use in unapproved indication [Unknown]
